FAERS Safety Report 12527545 (Version 1)
Quarter: 2016Q3

REPORT INFORMATION
  Report Type: Spontaneous
  Country: ES (occurrence: ES)
  Receive Date: 20160705
  Receipt Date: 20160705
  Transmission Date: 20161109
  Serious: Yes (Hospitalization, Other)
  Sender: FDA-Public Use
  Company Number: ES-TOLMAR, INC.-2016ES006389

PATIENT
  Age: 81 Year
  Sex: Male

DRUGS (9)
  1. UNIBENESTAN [Concomitant]
     Dosage: UNK
  2. METFORMIN [Concomitant]
     Active Substance: METFORMIN HYDROCHLORIDE
     Dosage: UNK
  3. PROCORALAN [Concomitant]
     Active Substance: IVABRADINE
     Dosage: 7.5 MG, DAILY
  4. PARACETAMOL [Concomitant]
     Active Substance: ACETAMINOPHEN
     Dosage: UNK
     Dates: start: 20151103
  5. ATORVASTATIN                       /01326102/ [Suspect]
     Active Substance: ATORVASTATIN
     Indication: DYSLIPIDAEMIA
     Dosage: 40 MG, ONCE DAILY
     Route: 048
     Dates: start: 20150204, end: 20151210
  6. ELIGARD [Suspect]
     Active Substance: LEUPROLIDE ACETATE
     Indication: PROSTATE CANCER
     Dosage: 45 MG, EVERY 6 MONTHS
     Route: 058
     Dates: start: 20150429, end: 20151120
  7. PROSCAR [Concomitant]
     Active Substance: FINASTERIDE
     Dosage: UNK
  8. ADIRO [Concomitant]
     Active Substance: ASPIRIN
     Dosage: UNK
  9. NOLOTIL                            /06276702/ [Concomitant]
     Dosage: UNK
     Dates: start: 20151103

REACTIONS (6)
  - Hepatitis [Recovering/Resolving]
  - Renal cyst [Unknown]
  - Arteriosclerosis [Unknown]
  - Pancreatic steatosis [Unknown]
  - Drug-induced liver injury [Unknown]
  - Fall [Unknown]

NARRATIVE: CASE EVENT DATE: 201507
